FAERS Safety Report 23260605 (Version 1)
Quarter: 2023Q4

REPORT INFORMATION
  Report Type: 
  Country: AU (occurrence: AU)
  Receive Date: 20231205
  Receipt Date: 20231205
  Transmission Date: 20240110
  Serious: Yes (Other)
  Sender: FDA-Public Use
  Company Number: AU-CELLTRION INC.-2023AU023023

PATIENT

DRUGS (3)
  1. INFLIXIMAB [Suspect]
     Active Substance: INFLIXIMAB
     Indication: Product used for unknown indication
  2. ENTYVIO [Suspect]
     Active Substance: VEDOLIZUMAB
     Indication: Product used for unknown indication
  3. UPADACITINIB [Suspect]
     Active Substance: UPADACITINIB
     Indication: Product used for unknown indication

REACTIONS (14)
  - Colitis ulcerative [Unknown]
  - Rectal haemorrhage [Unknown]
  - Ileus [Unknown]
  - Anastomotic leak [Unknown]
  - Small intestinal obstruction [Unknown]
  - Vaginal abscess [Unknown]
  - Cytomegalovirus infection [Unknown]
  - Post procedural haematoma [Unknown]
  - Oligoarthritis [Unknown]
  - Pouchitis [Unknown]
  - Rectal discharge [Unknown]
  - Vaginal discharge [Unknown]
  - Infusion related reaction [Unknown]
  - Drug specific antibody present [Unknown]
